FAERS Safety Report 24880489 (Version 1)
Quarter: 2025Q1

REPORT INFORMATION
  Report Type: Spontaneous
  Country: FR (occurrence: FR)
  Receive Date: 20250123
  Receipt Date: 20250123
  Transmission Date: 20250408
  Serious: Yes (Other)
  Sender: EISAI
  Company Number: None

PATIENT
  Age: 46 Year
  Sex: Male

DRUGS (6)
  1. LENVATINIB [Suspect]
     Active Substance: LENVATINIB
     Indication: Metastatic malignant melanoma
     Route: 048
     Dates: start: 20240805
  2. KEYTRUDA [Suspect]
     Active Substance: PEMBROLIZUMAB
     Indication: Metastatic malignant melanoma
     Route: 042
     Dates: start: 20230615, end: 20231020
  3. KEYTRUDA [Suspect]
     Active Substance: PEMBROLIZUMAB
     Route: 042
     Dates: start: 20240805, end: 20241121
  4. ALBUTEROL [Concomitant]
     Active Substance: ALBUTEROL
     Indication: Product used for unknown indication
  5. SINGULAIR [Concomitant]
     Active Substance: MONTELUKAST SODIUM
     Indication: Product used for unknown indication
  6. LAMALINE [Concomitant]
     Indication: Product used for unknown indication

REACTIONS (1)
  - Immune-mediated pancreatitis [Recovering/Resolving]

NARRATIVE: CASE EVENT DATE: 20241026
